FAERS Safety Report 10100708 (Version 1)
Quarter: 2014Q2

REPORT INFORMATION
  Report Type: Spontaneous
  Country: US (occurrence: US)
  Receive Date: 20140423
  Receipt Date: 20140423
  Transmission Date: 20141212
  Serious: Yes (Death)
  Sender: FDA-Public Use
  Company Number: PHHY2014US049263

PATIENT
  Age: 71 Year
  Sex: Male

DRUGS (4)
  1. EXELON [Suspect]
     Indication: DEMENTIA ALZHEIMER^S TYPE
     Dosage: 4.6 MG, PER DAY
     Route: 061
  2. ESCITALOPRAM OXALATE [Concomitant]
     Indication: DEPRESSION
     Dosage: 10 MG, PER DAY
  3. ESCITALOPRAM OXALATE [Concomitant]
     Dosage: 20 MG, PER DAY
  4. NAMENDA [Concomitant]

REACTIONS (10)
  - Dementia Alzheimer^s type [Fatal]
  - Learning disorder [Fatal]
  - Memory impairment [Fatal]
  - Depression [Fatal]
  - Dementia [Fatal]
  - Delirium [Fatal]
  - Anxiety [Fatal]
  - Abnormal behaviour [Fatal]
  - Emotional disorder [Fatal]
  - Drug intolerance [Unknown]
